FAERS Safety Report 10078598 (Version 3)
Quarter: 2014Q2

REPORT INFORMATION
  Report Type: Report from Study
  Country: GB (occurrence: GB)
  Receive Date: 20140415
  Receipt Date: 20140425
  Transmission Date: 20141212
  Serious: Yes (Hospitalization)
  Sender: FDA-Public Use
  Company Number: GB-MERCK-1403GBR010678

PATIENT
  Age: 74 Year
  Sex: Female

DRUGS (10)
  1. DEXAMETHASONE [Suspect]
     Indication: PLASMA CELL MYELOMA
     Dosage: 20 MG, QD
     Route: 048
     Dates: start: 20120807
  2. DEXAMETHASONE [Suspect]
     Indication: RENAL FAILURE
  3. NIFEDIPINE [Suspect]
     Indication: HYPERTENSION
     Dosage: 90 MG, QD
     Route: 048
     Dates: start: 2009, end: 20120907
  4. MONOCLONAL ANTIBODY (UNSPECIFIED) [Suspect]
     Indication: PLASMA CELL MYELOMA
     Dosage: 700 MG, QD
     Route: 042
     Dates: start: 20120807
  5. MONOCLONAL ANTIBODY (UNSPECIFIED) [Suspect]
     Indication: RENAL FAILURE
  6. BORTEZOMIB [Suspect]
     Indication: PLASMA CELL MYELOMA
     Dosage: 2.1 MG, QD
     Route: 042
     Dates: start: 20120807, end: 20120904
  7. BORTEZOMIB [Suspect]
     Indication: RENAL FAILURE
     Dosage: UNK
  8. BORTEZOMIB [Suspect]
     Indication: RENAL FAILURE
  9. DOXAZOSIN MESYLATE [Suspect]
     Indication: HYPERTENSION
     Dosage: 4 MG, BID
     Route: 048
     Dates: start: 2009, end: 20120907
  10. PROPRANOLOL HYDROCHLORIDE [Suspect]
     Indication: HYPERTENSION
     Dosage: 40 MG, BID
     Route: 048
     Dates: start: 2009, end: 20120907

REACTIONS (1)
  - Renal failure acute [Recovering/Resolving]
